FAERS Safety Report 10900651 (Version 2)
Quarter: 2015Q1

REPORT INFORMATION
  Report Type: Spontaneous
  Country: US (occurrence: US)
  Receive Date: 20150310
  Receipt Date: 20150313
  Transmission Date: 20150721
  Serious: Yes (Hospitalization)
  Sender: FDA-Public Use
  Company Number: US-SA-2015SA028715

PATIENT
  Age: 49 Year
  Sex: Male

DRUGS (2)
  1. ATROPINE [Concomitant]
     Active Substance: ATROPINE
     Route: 042
  2. EPINEPHRINE. [Suspect]
     Active Substance: EPINEPHRINE
     Indication: BRADYCARDIA
     Dosage: INFUSION
     Route: 040

REACTIONS (4)
  - Stress cardiomyopathy [Recovering/Resolving]
  - Troponin increased [Unknown]
  - Ventricular tachycardia [Unknown]
  - Sinus tachycardia [Unknown]
